FAERS Safety Report 5945013-3 (Version None)
Quarter: 2008Q4

REPORT INFORMATION
  Report Type: 
  Country: None (occurrence: None)
  Receive Date: 20081107
  Receipt Date: 20081030
  Transmission Date: 20090506
  Serious: Yes (Life-Threatening, Hospitalization, Other)
  Sender: FDA-Public Use
  Company Number: US-MERCK-0810USA05374

PATIENT
  Age: 60 Year
  Sex: Female

DRUGS (4)
  1. INVANZ [Suspect]
     Indication: APPENDICITIS
     Route: 042
  2. INVANZ [Suspect]
     Route: 042
  3. INVANZ [Suspect]
     Indication: PROPHYLAXIS
     Route: 042
  4. INVANZ [Suspect]
     Route: 042

REACTIONS (3)
  - CLOSTRIDIAL INFECTION [None]
  - GASTROINTESTINAL CARCINOMA [None]
  - SEPTIC SHOCK [None]
